FAERS Safety Report 17068074 (Version 1)
Quarter: 2019Q4

REPORT INFORMATION
  Report Type: Spontaneous
  Country: BR (occurrence: BR)
  Receive Date: 20191122
  Receipt Date: 20191122
  Transmission Date: 20200122
  Serious: Yes (Other)
  Sender: FDA-Public Use
  Company Number: BR-BIOMARINAP-BR-2019-126948

PATIENT

DRUGS (4)
  1. RECONTER [Concomitant]
     Active Substance: ESCITALOPRAM OXALATE
     Indication: DEPRESSION
     Dosage: 5 MILLIGRAM, QD
  2. DONAREN [Concomitant]
     Active Substance: TRAZODONE HYDROCHLORIDE
     Indication: ANXIETY
     Dosage: 25 MILLIGRAM, QD
  3. VIMIZIM [Suspect]
     Active Substance: ELOSULFASE ALFA
     Indication: MUCOPOLYSACCHARIDOSIS IV
     Dosage: UNK, QW
     Route: 042
     Dates: start: 2013
  4. MAXULID [Concomitant]
     Indication: ARTHRITIS
     Dosage: 400 MILLIGRAM, BID

REACTIONS (4)
  - Kyphosis [Recovering/Resolving]
  - Spinal pain [Recovering/Resolving]
  - Product dose omission [Unknown]
  - Scoliosis [Recovering/Resolving]
